FAERS Safety Report 18948072 (Version 1)
Quarter: 2021Q1

REPORT INFORMATION
  Report Type: Spontaneous
  Country: US (occurrence: US)
  Receive Date: 20210226
  Receipt Date: 20210226
  Transmission Date: 20210420
  Serious: No
  Sender: FDA-Public Use
  Company Number: US-FRESENIUS KABI-FK202101846

PATIENT
  Age: 54 Year
  Sex: Female
  Weight: 70.5 kg

DRUGS (5)
  1. DIPRIVAN [Suspect]
     Active Substance: PROPOFOL
     Dosage: 160 MCG/KG/MIN: 67.68 ML/HR AT 1051
     Dates: start: 20210223, end: 20210223
  2. DIPRIVAN [Suspect]
     Active Substance: PROPOFOL
     Dosage: 180 MCG/KG/MIN: 76.14 ML/HR AT 1029
     Dates: start: 20210223, end: 20210223
  3. DIPRIVAN [Suspect]
     Active Substance: PROPOFOL
     Indication: SEDATIVE THERAPY
     Dosage: 140 MCG/KG/MIN: 59.22 ML/HR AT 1018
     Dates: start: 20210223, end: 20210223
  4. DIPRIVAN [Suspect]
     Active Substance: PROPOFOL
     Dosage: STOPPED: 0 MCG/KG/MIN: 0 ML/HR AT 1104
     Dates: start: 20210223, end: 20210223
  5. DIPRIVAN [Suspect]
     Active Substance: PROPOFOL
     Dosage: 100 MCG/KG/MIN: 42.3 ML/HR AT 1059
     Dates: start: 20210223, end: 20210223

REACTIONS (1)
  - Dyskinesia [Recovered/Resolved]

NARRATIVE: CASE EVENT DATE: 20210223
